FAERS Safety Report 24122203 (Version 2)
Quarter: 2024Q3

REPORT INFORMATION
  Report Type: Spontaneous
  Country: US (occurrence: US)
  Receive Date: 20240722
  Receipt Date: 20240821
  Transmission Date: 20241017
  Serious: No
  Sender: BIONPHARMA
  Company Number: US-Bion-013500

PATIENT
  Age: 80 Year
  Sex: Female

DRUGS (1)
  1. LOPERAMIDE HYDROCHLORIDE [Suspect]
     Active Substance: LOPERAMIDE HYDROCHLORIDE
     Indication: Cholecystectomy

REACTIONS (2)
  - Intentional product misuse [Unknown]
  - Off label use [Unknown]
